FAERS Safety Report 4960440-9 (Version None)
Quarter: 2006Q2

REPORT INFORMATION
  Report Type: 
  Country: None (occurrence: None)
  Receive Date: 20060403
  Receipt Date: 20060328
  Transmission Date: 20061013
  Serious: Yes (Other)
  Sender: FDA-Public Use
  Company Number: US-GLAXOSMITHKLINE-A0599353A

PATIENT
  Age: 74 Year
  Sex: Female

DRUGS (6)
  1. FLONASE [Suspect]
     Indication: RHINITIS ALLERGIC
     Dosage: 1SPR TWICE PER DAY
     Route: 045
  2. BENADRYL [Concomitant]
  3. VERAPAMIL [Concomitant]
  4. DIGOXIN [Concomitant]
  5. ASPIRIN [Concomitant]
  6. EXTRA STRENGTH TYLENOL [Concomitant]

REACTIONS (8)
  - BRONCHITIS [None]
  - CHEST DISCOMFORT [None]
  - DYSPNOEA [None]
  - EPISTAXIS [None]
  - HEADACHE [None]
  - IRON DEFICIENCY ANAEMIA [None]
  - NASAL DISCOMFORT [None]
  - NASAL DRYNESS [None]
